FAERS Safety Report 25900283 (Version 1)
Quarter: 2025Q4

REPORT INFORMATION
  Report Type: Spontaneous
  Country: US (occurrence: US)
  Receive Date: 20251009
  Receipt Date: 20251009
  Transmission Date: 20260117
  Serious: No
  Sender: JOHNSON AND JOHNSON
  Company Number: US-JNJFOC-20251011303

PATIENT
  Age: 34 Year
  Sex: Female

DRUGS (3)
  1. SPRAVATO [Suspect]
     Active Substance: ESKETAMINE
     Indication: Product used for unknown indication
     Route: 045
     Dates: start: 20250916
  2. SPRAVATO [Suspect]
     Active Substance: ESKETAMINE
     Route: 045
     Dates: start: 20250909
  3. SPRAVATO [Suspect]
     Active Substance: ESKETAMINE
     Dosage: 26-AUG-2025, 28-AUG-2025
     Route: 045
     Dates: start: 20250821

REACTIONS (6)
  - Sedation [Recovered/Resolved]
  - Dizziness [Recovered/Resolved]
  - Feeling abnormal [Recovered/Resolved]
  - Fatigue [Recovered/Resolved]
  - Dissociation [Recovered/Resolved]
  - Paraesthesia [Recovered/Resolved]
